FAERS Safety Report 8600507-7 (Version None)
Quarter: 2012Q3

REPORT INFORMATION
  Report Type: 
  Country: None (occurrence: None)
  Receive Date: 20120817
  Receipt Date: 20120809
  Transmission Date: 20120928
  Serious: Yes (Hospitalization)
  Sender: FDA-Public Use
  Company Number: US-BAYER-2012-075969

PATIENT
  Age: 38 Year
  Sex: Female
  Weight: 199.55 kg

DRUGS (8)
  1. DYAZIDE [Concomitant]
     Dosage: 25 MG, DAILY
  2. YAZ [Suspect]
     Dosage: UNK
     Dates: start: 20080723, end: 20080831
  3. ATENOLOL [Concomitant]
     Dosage: 50 MG, DAILY
     Route: 048
     Dates: start: 20080723
  4. PROZAC [Concomitant]
     Dosage: 20 MG, DAILY
     Route: 048
     Dates: start: 20080723
  5. DYAZIDE [Concomitant]
     Dosage: 37.5 MG, DAILY
     Route: 048
     Dates: start: 20080723
  6. YASMIN [Suspect]
  7. HYDROCHLOROTHIAZIDE [Concomitant]
     Dosage: UNK
     Route: 048
     Dates: start: 20080723
  8. PHENTERMINE [Concomitant]
     Dosage: UNK
     Route: 048
     Dates: start: 20080723

REACTIONS (7)
  - DYSPNOEA [None]
  - GENERAL PHYSICAL HEALTH DETERIORATION [None]
  - PULMONARY EMBOLISM [None]
  - PAIN [None]
  - ANXIETY [None]
  - EMOTIONAL DISTRESS [None]
  - INJURY [None]
